FAERS Safety Report 25210743 (Version 1)
Quarter: 2025Q2

REPORT INFORMATION
  Report Type: Spontaneous
  Country: TR (occurrence: TR)
  Receive Date: 20250417
  Receipt Date: 20250417
  Transmission Date: 20250716
  Serious: Yes (Other)
  Sender: GILEAD
  Company Number: TR-GILEAD-2025-0710647

PATIENT
  Age: 34 Year
  Sex: Female

DRUGS (1)
  1. TRODELVY [Suspect]
     Active Substance: SACITUZUMAB GOVITECAN-HZIY
     Indication: Triple negative breast cancer
     Route: 065

REACTIONS (9)
  - Disease progression [Unknown]
  - Seizure [Unknown]
  - Metastases to liver [Unknown]
  - Syncope [Unknown]
  - Neutropenia [Recovering/Resolving]
  - Leukopenia [Unknown]
  - Breast mass [Unknown]
  - Fatigue [Unknown]
  - Anaemia [Unknown]
